FAERS Safety Report 24997308 (Version 2)
Quarter: 2025Q1

REPORT INFORMATION
  Report Type: Report from Study
  Country: CA (occurrence: CA)
  Receive Date: 20250222
  Receipt Date: 20250318
  Transmission Date: 20250408
  Serious: Yes (Hospitalization)
  Sender: CHIESI
  Company Number: CA-CHIESI-2025CHF01132

PATIENT
  Sex: Female
  Weight: 76 kg

DRUGS (2)
  1. DEFERIPRONE [Suspect]
     Active Substance: DEFERIPRONE
     Indication: Sickle cell disease
     Dosage: UNK, TID
     Route: 048
     Dates: start: 20220602
  2. DEFERIPRONE [Suspect]
     Active Substance: DEFERIPRONE
     Route: 048

REACTIONS (1)
  - Shock [Recovered/Resolved]
